FAERS Safety Report 11803449 (Version 1)
Quarter: 2015Q4

REPORT INFORMATION
  Report Type: Spontaneous
  Country: US (occurrence: US)
  Receive Date: 20151204
  Receipt Date: 20151204
  Transmission Date: 20160305
  Serious: Yes (Other)
  Sender: FDA-Public Use
  Company Number: US-PFIZER INC-2015421291

PATIENT
  Age: 65 Year
  Sex: Male

DRUGS (9)
  1. VIAGRA [Suspect]
     Active Substance: SILDENAFIL CITRATE
     Dosage: 50 MG, UNK
     Route: 048
     Dates: start: 20130528
  2. TAMSULOSIN [Concomitant]
     Active Substance: TAMSULOSIN
     Indication: PROSTATIC DISORDER
     Dosage: 0.4 MG (ONE CAPSULE), DAILY (EVERY DAY)
     Route: 048
     Dates: start: 20141023, end: 20141023
  3. SERTRALINE [Concomitant]
     Active Substance: SERTRALINE HYDROCHLORIDE
     Indication: AFFECTIVE DISORDER
  4. ARTIFICIAL TEARS PVA 1.4%/POVIDONE (PF) [Concomitant]
     Indication: DRY EYE
     Dosage: UNK (INSTILL ONE DROP IN BOTH EYES FIVE TIMES DAILY)
     Dates: start: 20140319, end: 20141205
  5. VIAGRA [Suspect]
     Active Substance: SILDENAFIL CITRATE
     Indication: ERECTILE DYSFUNCTION
     Dosage: UNK
     Dates: start: 20130315, end: 20140627
  6. HYDROCODONE/APAP [Concomitant]
     Active Substance: ACETAMINOPHEN\HYDROCODONE BITARTRATE
     Indication: PAIN
     Dosage: UNK, (10 MG/325 MG ONE TABLET) 3X/DAY
     Route: 048
     Dates: start: 20141023, end: 20141029
  7. SYNTHROID [Concomitant]
     Active Substance: LEVOTHYROXINE SODIUM
     Indication: THYROID DISORDER
     Dosage: 0.125 MG (ONE-HALF TABLET), DAILY (EVERY DAY)
     Route: 048
     Dates: start: 20141023, end: 20141023
  8. SERTRALINE [Concomitant]
     Active Substance: SERTRALINE HYDROCHLORIDE
     Indication: MANIA
     Dosage: 50 MG, (ONE TO HALF TABELT) DAILY (EVERY DAY)
     Route: 048
     Dates: start: 20140930, end: 20141219
  9. HYDROXYZINE [Concomitant]
     Active Substance: HYDROXYZINE\HYDROXYZINE HYDROCHLORIDE
     Indication: ANXIETY
     Dosage: 25 MG, (ONE CAPSULE) 3X/DAY (AS NEEDED)
     Dates: start: 20140930, end: 20141212

REACTIONS (1)
  - Malignant melanoma [Unknown]

NARRATIVE: CASE EVENT DATE: 20140917
